FAERS Safety Report 23434031 (Version 1)
Quarter: 2024Q1

REPORT INFORMATION
  Report Type: Report from Study
  Country: TH (occurrence: TH)
  Receive Date: 20240123
  Receipt Date: 20240123
  Transmission Date: 20240410
  Serious: Yes (Life-Threatening)
  Sender: FDA-Public Use
  Company Number: TH-MYLANLABS-2024M1007157

PATIENT
  Sex: Female

DRUGS (1)
  1. PACLITAXEL [Suspect]
     Active Substance: PACLITAXEL
     Indication: Neoplasm malignant
     Dosage: OVER 3H (IV INFUSION)
     Route: 042

REACTIONS (3)
  - Type I hypersensitivity [Recovered/Resolved]
  - Oxygen saturation decreased [Unknown]
  - Hypotension [Unknown]
